FAERS Safety Report 21709929 (Version 2)
Quarter: 2023Q1

REPORT INFORMATION
  Report Type: Spontaneous
  Country: CA (occurrence: CA)
  Receive Date: 20221211
  Receipt Date: 20230111
  Transmission Date: 20230417
  Serious: Yes (Death, Other)
  Sender: FDA-Public Use
  Company Number: CA-CELLTRION INC.-2022CA006656

PATIENT

DRUGS (3)
  1. INFLECTRA [Suspect]
     Active Substance: INFLIXIMAB-DYYB
     Indication: Psoriatic arthropathy
     Dosage: 300MG WEEKS 0,2,6 THEN EVERY 8 WEEKS-
     Route: 042
     Dates: start: 20220316
  2. INFLECTRA [Suspect]
     Active Substance: INFLIXIMAB-DYYB
     Dosage: 300MG WEEKS 0,2,6 THEN EVERY 8 WEEKS-
     Route: 042
     Dates: start: 20221005
  3. METHOTREXATE SODIUM [Concomitant]
     Active Substance: METHOTREXATE SODIUM
     Dosage: 25 MG, WEEKLY

REACTIONS (2)
  - Sudden death [Fatal]
  - Off label use [Unknown]

NARRATIVE: CASE EVENT DATE: 20220316
